FAERS Safety Report 8153909-X (Version None)
Quarter: 2012Q1

REPORT INFORMATION
  Report Type: 
  Country: None (occurrence: None)
  Receive Date: 20120221
  Receipt Date: 20120203
  Transmission Date: 20120608
  Serious: Yes (Hospitalization)
  Sender: FDA-Public Use
  Company Number: US-ROCHE-1041315

PATIENT
  Age: 52 Year
  Sex: Female
  Weight: 69.3 kg

DRUGS (10)
  1. AVASTIN [Suspect]
     Indication: OVARIAN CANCER
     Dosage: CYCLE: 3 WEEKS, PHASE A (CYCLE:1-6), PHASE B (CYCLE:7-22), OVER 30-90 MIN ON DAY 1, BEGINNING WITH C
     Route: 042
  2. CARBOPLATIN [Suspect]
     Indication: MALIGNANT PERITONEAL NEOPLASM
  3. CARBOPLATIN [Suspect]
     Indication: OVARIAN CANCER
     Dosage: CYCLE: 3 WEEKS, PHASE A (CYCLE:1-6), AUC 6 IV ON DAY 1,TOTAL DOSE ADMINISTERED: 584 MG
     Route: 042
     Dates: start: 20111027
  4. AUGMENTIN '125' [Concomitant]
  5. AVASTIN [Suspect]
     Indication: FALLOPIAN TUBE CANCER
  6. CARBOPLATIN [Suspect]
     Indication: FALLOPIAN TUBE CANCER
  7. PACLITAXEL [Suspect]
     Indication: OVARIAN CANCER
     Dosage: CYCLE: 3 WEEKS, PHASE A (CYCLE:1-6), OVER 1 HR ON DAY 1, 8 AND 15, TOTAL DOSE ADMINISTERED: 290MG
     Route: 042
     Dates: start: 20111027
  8. PACLITAXEL [Suspect]
     Indication: MALIGNANT PERITONEAL NEOPLASM
  9. AVASTIN [Suspect]
     Indication: MALIGNANT PERITONEAL NEOPLASM
  10. PACLITAXEL [Suspect]
     Indication: FALLOPIAN TUBE CANCER

REACTIONS (8)
  - NAUSEA [None]
  - DEHYDRATION [None]
  - PYREXIA [None]
  - LARYNGITIS [None]
  - VOMITING [None]
  - DIARRHOEA [None]
  - DYSPHAGIA [None]
  - OROPHARYNGEAL PAIN [None]
